FAERS Safety Report 15220174 (Version 1)
Quarter: 2018Q3

REPORT INFORMATION
  Report Type: Spontaneous
  Country: US (occurrence: US)
  Receive Date: 20180731
  Receipt Date: 20180731
  Transmission Date: 20181010
  Serious: No
  Sender: FDA-Public Use
  Company Number: US-PFIZER INC-2018307594

PATIENT
  Age: 79 Year
  Sex: Male

DRUGS (1)
  1. LYRICA [Suspect]
     Active Substance: PREGABALIN
     Indication: HEADACHE
     Dosage: 50 MG, 3X/DAY

REACTIONS (3)
  - Somnolence [Unknown]
  - Product use in unapproved indication [Unknown]
  - Confusional state [Unknown]
